FAERS Safety Report 7314011-X (Version None)
Quarter: 2011Q1

REPORT INFORMATION
  Report Type: 
  Country: None (occurrence: None)
  Receive Date: 20110225
  Receipt Date: 20110214
  Transmission Date: 20110831
  Serious: Yes (Death)
  Sender: FDA-Public Use
  Company Number: US-ACTELION-A-CH2011-44799

PATIENT
  Age: 10 Year
  Sex: Male

DRUGS (4)
  1. COUMADIN [Concomitant]
     Route: 048
  2. SILDENAFIL [Concomitant]
  3. TRACLEER [Suspect]
     Indication: PULMONARY ARTERIAL HYPERTENSION
     Route: 048
  4. COUMADIN [Concomitant]
     Route: 048

REACTIONS (5)
  - RESPIRATORY FAILURE [None]
  - OXYGEN CONSUMPTION INCREASED [None]
  - DYSPNOEA [None]
  - BIOPSY LUNG [None]
  - DEATH [None]
